FAERS Safety Report 9959905 (Version 1)
Quarter: 2014Q1

REPORT INFORMATION
  Report Type: Report from Study
  Country: US (occurrence: US)
  Receive Date: 20140305
  Receipt Date: 20140305
  Transmission Date: 20141002
  Serious: No
  Sender: FDA-Public Use
  Company Number: US-ABBVIE-13P-163-1103033-00

PATIENT
  Sex: Female

DRUGS (5)
  1. HUMIRA [Suspect]
     Indication: PSORIATIC ARTHROPATHY
     Dosage: ONCE DOSE ONLY
     Dates: start: 20130527
  2. TENORMIN [Concomitant]
     Indication: BLOOD PRESSURE
  3. SYNTHROID [Concomitant]
     Indication: THYROID DISORDER
  4. ASA [Concomitant]
     Indication: CARDIAC DISORDER
  5. LEXAPRO [Concomitant]
     Indication: DEPRESSION

REACTIONS (2)
  - Wound haemorrhage [Recovering/Resolving]
  - Wound [Recovering/Resolving]
